FAERS Safety Report 9835253 (Version 2)
Quarter: 2014Q2

REPORT INFORMATION
  Report Type: Spontaneous
  Country: US (occurrence: US)
  Receive Date: 20140122
  Receipt Date: 20140424
  Transmission Date: 20141212
  Serious: No
  Sender: FDA-Public Use
  Company Number: US-BRISTOL-MYERS SQUIBB COMPANY-19893684

PATIENT
  Age: 80 Year
  Sex: Male
  Weight: 90.7 kg

DRUGS (13)
  1. ELIQUIS [Suspect]
     Indication: ATRIAL FIBRILLATION
     Route: 048
     Dates: start: 20130411, end: 20140103
  2. DILTIAZEM HCL [Concomitant]
  3. LISINOPRIL [Concomitant]
  4. ADVAIR [Concomitant]
  5. SYNTHROID [Concomitant]
  6. SPIRIVA [Concomitant]
  7. FEXOFENADINE HCL [Concomitant]
  8. NASONEX [Concomitant]
  9. OMEPRAZOLE [Concomitant]
  10. METAMUCIL [Concomitant]
  11. FIBERCON [Concomitant]
  12. SINGULAIR [Concomitant]
  13. CELESTENE [Concomitant]

REACTIONS (1)
  - Pruritus [Not Recovered/Not Resolved]
